FAERS Safety Report 14699673 (Version 1)
Quarter: 2018Q1

REPORT INFORMATION
  Report Type: Report from Study
  Country: US (occurrence: US)
  Receive Date: 20180330
  Receipt Date: 20180330
  Transmission Date: 20180509
  Serious: Yes (Hospitalization)
  Sender: FDA-Public Use
  Company Number: US-EISAI MEDICAL RESEARCH-EC-2018-036217

PATIENT
  Age: 64 Year
  Sex: Female
  Weight: 69 kg

DRUGS (32)
  1. FOLIC ACID. [Concomitant]
     Active Substance: FOLIC ACID
  2. ALPRAZOLAM. [Concomitant]
     Active Substance: ALPRAZOLAM
  3. AMLODIPINE BESYLATE. [Concomitant]
     Active Substance: AMLODIPINE BESYLATE
  4. NITROFURANTOIN MONO-MA [Concomitant]
  5. FAMOTIDINE. [Concomitant]
     Active Substance: FAMOTIDINE
  6. PRAVASTATIN SODIUM. [Concomitant]
     Active Substance: PRAVASTATIN SODIUM
  7. LACTULOSE. [Concomitant]
     Active Substance: LACTULOSE
  8. LORAZEPAM. [Concomitant]
     Active Substance: LORAZEPAM
  9. ALLOPURINOL. [Concomitant]
     Active Substance: ALLOPURINOL
  10. AMOXICILLIN. [Concomitant]
     Active Substance: AMOXICILLIN
  11. MEGESTROL ACETA [Concomitant]
  12. CABOMETYX [Concomitant]
     Active Substance: CABOZANTINIB S-MALATE
  13. LENVIMA [Suspect]
     Active Substance: LENVATINIB
     Indication: RENAL CANCER
     Route: 048
     Dates: start: 201802, end: 20180323
  14. AFINITOR [Concomitant]
     Active Substance: EVEROLIMUS
  15. OMEPRAZOLE. [Concomitant]
     Active Substance: OMEPRAZOLE
  16. DEXAMETHASONE/SILADRYL/ADVANCED ANTACID-ANTIG [Concomitant]
  17. AZELASTINE. [Concomitant]
     Active Substance: AZELASTINE HYDROCHLORIDE
  18. HUMALOG [Concomitant]
     Active Substance: INSULIN LISPRO
  19. ONDANSETRON [Concomitant]
     Active Substance: ONDANSETRON
  20. LOMOTIL [Concomitant]
     Active Substance: ATROPINE SULFATE\DIPHENOXYLATE HYDROCHLORIDE
  21. LISINOPRIL. [Concomitant]
     Active Substance: LISINOPRIL
  22. DRONABINOL. [Concomitant]
     Active Substance: DRONABINOL
  23. LEVOTHYROXINE SODIUM. [Concomitant]
     Active Substance: LEVOTHYROXINE SODIUM
  24. METHYLPREDNISOLONE. [Concomitant]
     Active Substance: METHYLPREDNISOLONE
  25. FLUTICASONE. [Concomitant]
     Active Substance: FLUTICASONE
  26. BUPROPION XL [Concomitant]
     Active Substance: BUPROPION
  27. FLUZONE QUAD [Concomitant]
  28. ATORVASTATIN [Concomitant]
     Active Substance: ATORVASTATIN
  29. ETODOLAC. [Concomitant]
     Active Substance: ETODOLAC
  30. PANTOPRAZOLE SODIUM. [Concomitant]
     Active Substance: PANTOPRAZOLE SODIUM
  31. HYDROXYZINE HCL [Concomitant]
     Active Substance: HYDROXYZINE HYDROCHLORIDE
  32. HYDROCODONE [Concomitant]
     Active Substance: HYDROCODONE

REACTIONS (14)
  - Weight decreased [Not Recovered/Not Resolved]
  - Blood calcium increased [Unknown]
  - Diarrhoea [Not Recovered/Not Resolved]
  - Fatigue [Not Recovered/Not Resolved]
  - Nausea [Not Recovered/Not Resolved]
  - Dehydration [Not Recovered/Not Resolved]
  - Oral discomfort [Unknown]
  - Tongue ulceration [Not Recovered/Not Resolved]
  - Decreased appetite [Not Recovered/Not Resolved]
  - Cheilitis [Not Recovered/Not Resolved]
  - Malignant neoplasm progression [Not Recovered/Not Resolved]
  - Vomiting [Not Recovered/Not Resolved]
  - Gastrooesophageal reflux disease [Unknown]
  - Stomatitis [Unknown]

NARRATIVE: CASE EVENT DATE: 2018
